FAERS Safety Report 10422542 (Version 2)
Quarter: 2014Q3

REPORT INFORMATION
  Report Type: Report from Study
  Country: US (occurrence: US)
  Receive Date: 20140901
  Receipt Date: 20140910
  Transmission Date: 20150326
  Serious: Yes (Hospitalization, Other)
  Sender: FDA-Public Use
  Company Number: US-009507513-1408USA016390

PATIENT
  Age: 70 Year
  Weight: 101.59 kg

DRUGS (2)
  1. VELCADE [Suspect]
     Active Substance: BORTEZOMIB
     Indication: PLASMA CELL MYELOMA
     Dosage: 3.1 MG/M2, QW
     Route: 042
  2. HEXADROL [Suspect]
     Active Substance: DEXAMETHASONE
     Indication: PLASMA CELL MYELOMA
     Dosage: 40 MG, QW
     Route: 048
     Dates: start: 20100211, end: 20100518

REACTIONS (10)
  - Renal failure chronic [Unknown]
  - Polyuria [Unknown]
  - Generalised oedema [Unknown]
  - Abdominal pain [Recovering/Resolving]
  - Dyspnoea [Unknown]
  - Abdominal distension [Recovering/Resolving]
  - Fluid overload [Recovering/Resolving]
  - Polyuria [Unknown]
  - Renal failure [Recovering/Resolving]
  - Oedema peripheral [Unknown]

NARRATIVE: CASE EVENT DATE: 20100310
